FAERS Safety Report 9604502 (Version 2)
Quarter: 2013Q4

REPORT INFORMATION
  Report Type: Report from Study
  Country: KR (occurrence: KR)
  Receive Date: 20131008
  Receipt Date: 20131206
  Transmission Date: 20140711
  Serious: Yes (Other)
  Sender: FDA-Public Use
  Company Number: KR-ASTELLAS-2013JP010395

PATIENT
  Age: 13 Year
  Sex: Female

DRUGS (10)
  1. TACROLIMUS CAPSULES [Suspect]
     Indication: LUPUS NEPHRITIS
     Dosage: 1 MG, UNKNOWN/D
     Route: 048
     Dates: start: 20120220, end: 20121226
  2. TACROLIMUS CAPSULES [Suspect]
     Dosage: 2 MG, UNKNOWN/D
     Route: 048
     Dates: start: 20121227
  3. MYCOPHENOLATE [Concomitant]
     Indication: SYSTEMIC LUPUS ERYTHEMATOSUS
     Dosage: 2000 MG, UNKNOWN/D
     Route: 048
     Dates: end: 20120802
  4. REBAMIPIDE [Concomitant]
     Indication: PROPHYLAXIS
     Dosage: 200 MG, UNKNOWN/D
     Route: 048
  5. HYDROXYCHLOROQUINE SULFATE [Concomitant]
     Indication: SYSTEMIC LUPUS ERYTHEMATOSUS
     Dosage: 200 MG, UNKNOWN/D
     Route: 048
  6. PREDNISOLONE [Concomitant]
     Indication: SYSTEMIC LUPUS ERYTHEMATOSUS
     Dosage: 10 MG, UNKNOWN/D
     Route: 048
     Dates: end: 20130104
  7. PREDNISOLONE [Concomitant]
     Dosage: 20 MG, UNKNOWN/D
     Route: 048
     Dates: start: 20130105
  8. RAMIPRIL [Concomitant]
     Indication: SYSTEMIC LUPUS ERYTHEMATOSUS
     Dosage: 2.5 MG, UNKNOWN/D
     Route: 048
  9. FOSAMAX PLUS D [Concomitant]
     Indication: PROPHYLAXIS
     Dosage: 1 DF, UNKNOWN/D
     Route: 048
  10. ACETAMINOPHEN [Concomitant]
     Indication: PAIN MANAGEMENT
     Dosage: 1300 MG, UNKNOWN/D
     Route: 048
     Dates: start: 20120220, end: 20130305

REACTIONS (2)
  - Varicella [Recovered/Resolved]
  - Appendicitis [Recovered/Resolved]
